FAERS Safety Report 8084305-1 (Version None)
Quarter: 2012Q1

REPORT INFORMATION
  Report Type: 
  Country: None (occurrence: None)
  Receive Date: 20120128
  Receipt Date: 20110304
  Transmission Date: 20120608
  Serious: No
  Sender: FDA-Public Use
  Company Number: US-ABBOTT-11P-163-0709701-00

PATIENT
  Age: 37 Year
  Sex: Female

DRUGS (2)
  1. HUMIRA [Suspect]
     Indication: RHEUMATOID ARTHRITIS
     Dates: start: 20110101
  2. UNKNOWN MEDICATION(S) [Concomitant]
     Indication: PRODUCT USED FOR UNKNOWN INDICATION

REACTIONS (7)
  - DRUG DOSE OMISSION [None]
  - BALANCE DISORDER [None]
  - ROAD TRAFFIC ACCIDENT [None]
  - MEDICATION ERROR [None]
  - VISUAL IMPAIRMENT [None]
  - MENORRHAGIA [None]
  - MALAISE [None]
